FAERS Safety Report 7595142-6 (Version None)
Quarter: 2011Q3

REPORT INFORMATION
  Report Type: 
  Country: None (occurrence: None)
  Receive Date: 20110707
  Receipt Date: 20110627
  Transmission Date: 20111222
  Serious: Yes (Hospitalization, Other)
  Sender: FDA-Public Use
  Company Number: BR-SANOFI-AVENTIS-2011SA001935

PATIENT
  Age: 69 Year
  Sex: Male
  Weight: 113.5 kg

DRUGS (15)
  1. CLONIDINE HYDROCHLORIDE [Concomitant]
     Indication: BLOOD PRESSURE
     Route: 048
  2. ALL OTHER THERAPEUTIC PRODUCTS [Concomitant]
     Route: 048
  3. VITAMIN E [Concomitant]
     Route: 048
  4. ATENOLOL [Concomitant]
     Route: 048
  5. ASPIRIN [Concomitant]
     Route: 048
  6. LANTUS [Suspect]
     Indication: TYPE 2 DIABETES MELLITUS
     Dosage: DAILY FASTING IN THE MORNING AND STARTED MORE THAN 4 YEARS AGO
     Route: 058
  7. ACETYLCYSTEINE [Concomitant]
     Indication: RENAL DISORDER
     Route: 048
  8. CLIKSTAR [Suspect]
  9. CALCITRIOL [Concomitant]
     Route: 048
  10. FOLIC ACID [Concomitant]
     Route: 048
  11. AAS INFANTIL [Concomitant]
     Route: 048
  12. NOVORAPID [Concomitant]
     Indication: TYPE 2 DIABETES MELLITUS
     Route: 058
  13. CALCITRIOL [Concomitant]
     Route: 048
  14. BENERVA [Concomitant]
     Route: 048
  15. AMLODIPINE [Concomitant]
     Indication: BLOOD PRESSURE
     Route: 048

REACTIONS (5)
  - SKIN INFECTION [None]
  - ADVERSE REACTION [None]
  - FEELING ABNORMAL [None]
  - CORONARY ARTERY DISEASE [None]
  - RENAL DISORDER [None]
